FAERS Safety Report 4375009-7 (Version None)
Quarter: 2004Q2

REPORT INFORMATION
  Report Type: 
  Country: None (occurrence: None)
  Receive Date: 20040608
  Receipt Date: 20031119
  Transmission Date: 20050107
  Serious: No
  Sender: FDA-Public Use
  Company Number: 10044048-NA01-1

PATIENT

DRUGS (1)
  1. HEPARIN SODIUM 1000 UNITS +9% SODIUM CHLOR.INJ. [Suspect]
     Dosage: 3 ML/HR OR GREATER, CONTINUOUS, INTRAARTERIAL
     Route: 013

REACTIONS (1)
  - THROMBOSIS [None]
